FAERS Safety Report 4510147-7 (Version None)
Quarter: 2004Q4

REPORT INFORMATION
  Report Type: 
  Country: None (occurrence: None)
  Receive Date: 20041124
  Receipt Date: 20040407
  Transmission Date: 20050328
  Serious: Yes (Death, Hospitalization, Other)
  Sender: FDA-Public Use
  Company Number: SE-BRISTOL-MYERS SQUIBB COMPANY-12767364

PATIENT
  Age: 64 Year
  Sex: Male

DRUGS (20)
  1. SENDOXAN [Suspect]
     Indication: VASCULITIS
     Dates: start: 20031127, end: 20031223
  2. PREDNISOLONE [Suspect]
     Indication: VASCULITIS
     Dates: start: 20031127
  3. BACTRIM [Suspect]
  4. PRIMPERAN INJ [Concomitant]
  5. ACETAMINOPHEN [Concomitant]
  6. ALLOPURINOL [Concomitant]
  7. SODIUM BICARBONATE [Concomitant]
  8. MYCOSTATIN [Concomitant]
  9. HERACILLIN [Concomitant]
  10. SELOKEN [Concomitant]
  11. ETALPHA [Concomitant]
  12. NITROMEX [Concomitant]
  13. FUROSEMIDE [Concomitant]
  14. DEXOFEN [Concomitant]
  15. ARTONIL [Concomitant]
  16. KALCIPOS [Concomitant]
  17. EPOETIN BETA [Concomitant]
  18. ANDAPSIN [Concomitant]
  19. VENOFER [Concomitant]
  20. ZOPIKLON [Concomitant]

REACTIONS (4)
  - BLOOD CREATININE INCREASED [None]
  - PANCREATITIS CHRONIC [None]
  - PANCREATITIS HAEMORRHAGIC [None]
  - PULMONARY EMBOLISM [None]
